FAERS Safety Report 7073942-9 (Version None)
Quarter: 2010Q4

REPORT INFORMATION
  Report Type: 
  Country: None (occurrence: None)
  Receive Date: 20101029
  Receipt Date: 20101018
  Transmission Date: 20110411
  Serious: Yes (Other)
  Sender: FDA-Public Use
  Company Number: PHHY2010IT70508

PATIENT
  Sex: Male

DRUGS (2)
  1. AFINITOR [Suspect]
     Indication: RENAL NEOPLASM
     Dosage: 10 MG, DAILY
     Route: 048
     Dates: start: 20100722, end: 20100819
  2. DURAGESIC-100 [Concomitant]
     Dosage: 50 UG, UNK
     Route: 062
     Dates: start: 20100709

REACTIONS (3)
  - SCROTAL ERYTHEMA [None]
  - SCROTAL ULCER [None]
  - URTICARIA [None]
